FAERS Safety Report 13718036 (Version 2)
Quarter: 2017Q3

REPORT INFORMATION
  Report Type: Spontaneous
  Country: BR (occurrence: BR)
  Receive Date: 20170705
  Receipt Date: 20170707
  Transmission Date: 20171127
  Serious: Yes (Hospitalization)
  Sender: FDA-Public Use
  Company Number: BR-JNJFOC-20170701041

PATIENT
  Sex: Male

DRUGS (2)
  1. INVEGA SUSTENNA [Suspect]
     Active Substance: PALIPERIDONE PALMITATE
     Indication: BIPOLAR DISORDER
     Dosage: 150 MG/ 1.5 ML
     Route: 030
  2. INVEGA SUSTENNA [Suspect]
     Active Substance: PALIPERIDONE PALMITATE
     Indication: SCHIZOPHRENIA
     Dosage: 150 MG/ 1.5 ML
     Route: 030

REACTIONS (5)
  - Bipolar disorder [Unknown]
  - Drug ineffective [Unknown]
  - Incorrect dose administered [Unknown]
  - Off label use [Unknown]
  - Schizophrenia [Unknown]
